FAERS Safety Report 6763588-1 (Version None)
Quarter: 2010Q2

REPORT INFORMATION
  Report Type: 
  Country: None (occurrence: None)
  Receive Date: 20100610
  Receipt Date: 20100601
  Transmission Date: 20101027
  Serious: Yes (Hospitalization)
  Sender: FDA-Public Use
  Company Number: US-SANOFI-AVENTIS-2010SA032504

PATIENT
  Age: 79 Year
  Sex: Female

DRUGS (15)
  1. ARAVA [Suspect]
     Indication: RHEUMATOID ARTHRITIS
     Route: 048
     Dates: start: 20070101, end: 20100512
  2. BISOPROLOL FUMARATE AND HYDROCHLOROTHIAZIDE [Suspect]
     Indication: HYPERTENSION
     Dates: start: 20070101, end: 20100518
  3. INVESTIGATIONAL DRUG [Concomitant]
     Dosage: VGFT 0.5MG OR 2.0MG OR RANIBIZUMAB 0.5MG
     Route: 031
     Dates: start: 20090709
  4. METHOTREXATE [Concomitant]
     Indication: RHEUMATOID ARTHRITIS
     Route: 048
     Dates: start: 20060101, end: 20100518
  5. METHOTREXATE [Concomitant]
     Route: 048
     Dates: start: 20100518
  6. PREDNISONE [Concomitant]
     Indication: RHEUMATOID ARTHRITIS
     Route: 048
     Dates: start: 20100410, end: 20100516
  7. LOVAZA [Concomitant]
     Indication: SUPPLEMENTATION THERAPY
     Dates: start: 20090617
  8. CLONIDINE [Concomitant]
     Indication: HYPERTENSION
     Route: 048
     Dates: start: 20090617
  9. SIMVASTATIN [Concomitant]
     Dates: start: 20070101, end: 20100515
  10. REGLAN /YUG/ [Concomitant]
     Route: 048
     Dates: start: 20090617
  11. FOLIC ACID [Concomitant]
     Indication: SUPPLEMENTATION THERAPY
     Route: 048
     Dates: start: 19990101
  12. PIROXICAM [Concomitant]
     Indication: ARTHRITIS
     Route: 048
     Dates: start: 20060101
  13. CHLORTHALIDONE [Concomitant]
     Indication: HYPERTENSION
     Route: 048
     Dates: start: 20090429, end: 20100101
  14. MULTI-VITAMINS [Concomitant]
     Indication: SUPPLEMENTATION THERAPY
     Route: 048
  15. PREDNISONE [Concomitant]
     Route: 048
     Dates: start: 20100410, end: 20100516

REACTIONS (8)
  - CHEST PAIN [None]
  - CORONARY ARTERY DISEASE [None]
  - ELECTROCARDIOGRAM ST SEGMENT ABNORMAL [None]
  - HYPOKALAEMIA [None]
  - MUSCULOSKELETAL STIFFNESS [None]
  - MYALGIA [None]
  - PYREXIA [None]
  - SINUS TACHYCARDIA [None]
